FAERS Safety Report 10915679 (Version 1)
Quarter: 2015Q1

REPORT INFORMATION
  Report Type: Spontaneous
  Country: US (occurrence: US)
  Receive Date: 20150316
  Receipt Date: 20150316
  Transmission Date: 20150721
  Serious: No
  Sender: FDA-Public Use
  Company Number: US-ASTRAZENECA-2015SE21218

PATIENT
  Sex: Male

DRUGS (2)
  1. PULMICORT RESPULES [Suspect]
     Active Substance: BUDESONIDE
     Indication: SINUS DISORDER
     Dosage: UNKNOWN
     Route: 055
  2. PULMICORT RESPULES [Suspect]
     Active Substance: BUDESONIDE
     Indication: HYPERSENSITIVITY
     Dosage: UNKNOWN
     Route: 055

REACTIONS (4)
  - Adverse drug reaction [Unknown]
  - Off label use [Unknown]
  - Feeling abnormal [Unknown]
  - Pain [Unknown]
